FAERS Safety Report 20502885 (Version 1)
Quarter: 2022Q1

REPORT INFORMATION
  Report Type: Spontaneous
  Country: US (occurrence: None)
  Receive Date: 20220220
  Receipt Date: 20220220
  Transmission Date: 20220424
  Serious: Yes (Hospitalization, Disabling, Other)
  Sender: FDA-Public Use
  Company Number: None

PATIENT
  Age: 51 Year
  Sex: Female
  Weight: 72.57 kg

DRUGS (19)
  1. MAGNEVIST [Suspect]
     Active Substance: GADOPENTETATE DIMEGLUMINE
  2. MULTIHANCE [Suspect]
     Active Substance: GADOBENATE DIMEGLUMINE
  3. PROHANCE [Suspect]
     Active Substance: GADOTERIDOL
  4. OMNISCAN [Suspect]
     Active Substance: GADODIAMIDE
  5. Albuterolnebs [Concomitant]
  6. UNSPECIFIED INGREDIENT [Concomitant]
     Active Substance: UNSPECIFIED INGREDIENT
  7. ipratoprium [Concomitant]
  8. PREDNISONE [Concomitant]
     Active Substance: PREDNISONE
  9. CLOBETASOL [Concomitant]
     Active Substance: CLOBETASOL
  10. OMEPRAZOLE [Concomitant]
     Active Substance: OMEPRAZOLE
  11. LOSARTAN [Concomitant]
     Active Substance: LOSARTAN
  12. Retinoids topical [Concomitant]
  13. ALPRAZOLAM [Concomitant]
     Active Substance: ALPRAZOLAM
  14. DIPHENHYDRAMINE [Concomitant]
     Active Substance: DIPHENHYDRAMINE
  15. Biofreeze patches/ gels [Concomitant]
  16. tens unit [Concomitant]
  17. TYLENOL [Concomitant]
     Active Substance: ACETAMINOPHEN
  18. REFRESH SOLUTION NOS [Concomitant]
     Active Substance: CARBOXYMETHYLCELLULOSE SODIUM\GLYCERIN
  19. rx therapeutic massage/ physical therapy [Concomitant]

REACTIONS (2)
  - Meningeal neoplasm [None]
  - Neoplasm progression [None]

NARRATIVE: CASE EVENT DATE: 20080825
